FAERS Safety Report 21686403 (Version 1)
Quarter: 2022Q4

REPORT INFORMATION
  Report Type: Spontaneous
  Country: US (occurrence: US)
  Receive Date: 20221206
  Receipt Date: 20221206
  Transmission Date: 20230113
  Serious: No
  Sender: FDA-Public Use
  Company Number: US-TEVA-2022-US-2829294

PATIENT
  Age: 68 Year
  Sex: Male

DRUGS (1)
  1. DEXTROAMPHET SACCHARAT, AMPHET ASPARTATE, DEXTROAMPHET SULFATE AND AMP [Suspect]
     Active Substance: AMPHETAMINE ASPARTATE\AMPHETAMINE SULFATE\DEXTROAMPHETAMINE SACCHARATE\DEXTROAMPHETAMINE SULFATE
     Indication: Product used for unknown indication
     Dosage: 30 MG, VERY FINE WHITE POWDER TOOK 25% OF CAPSULE, R-3061 30 MG, NO SCORE ORANGE COLOR CAPSULES
     Route: 065
     Dates: start: 20221010

REACTIONS (2)
  - Heart rate increased [Unknown]
  - Product contamination physical [Unknown]

NARRATIVE: CASE EVENT DATE: 20221010
